FAERS Safety Report 9265482 (Version 5)
Quarter: 2014Q4

REPORT INFORMATION
  Report Type: Spontaneous
  Country: US (occurrence: US)
  Receive Date: 20130501
  Receipt Date: 20141119
  Transmission Date: 20150529
  Serious: Yes (Hospitalization, Disabling)
  Sender: FDA-Public Use
  Company Number: US-MERCK-1304USA016101

PATIENT
  Sex: Male

DRUGS (2)
  1. PROPECIA [Suspect]
     Active Substance: FINASTERIDE
     Indication: ALOPECIA
     Dosage: 1 MG, QD
     Route: 048
     Dates: start: 201210, end: 201302
  2. FINASTERIDE. [Suspect]
     Active Substance: FINASTERIDE
     Indication: ALOPECIA
     Dosage: 1 MG, UNK
     Route: 048
     Dates: start: 201302, end: 201303

REACTIONS (22)
  - Umbilical hernia repair [Unknown]
  - Irritability [Unknown]
  - Anxiety [Not Recovered/Not Resolved]
  - Hernia repair [Unknown]
  - Asthenia [Recovering/Resolving]
  - Skin lesion excision [Unknown]
  - Incarcerated umbilical hernia [Not Recovered/Not Resolved]
  - Hypogonadism [Unknown]
  - Sleep disorder [Unknown]
  - Blood testosterone decreased [Unknown]
  - Penis disorder [Unknown]
  - Abdominal pain [Unknown]
  - Libido decreased [Unknown]
  - Testicular disorder [Unknown]
  - Depression [Recovering/Resolving]
  - Emotional distress [Not Recovered/Not Resolved]
  - Sexual dysfunction [Not Recovered/Not Resolved]
  - Arthralgia [Unknown]
  - Weight increased [Unknown]
  - Lethargy [Recovering/Resolving]
  - Mood swings [Unknown]
  - Disturbance in attention [Unknown]

NARRATIVE: CASE EVENT DATE: 2012
